FAERS Safety Report 4482430-5 (Version None)
Quarter: 2004Q4

REPORT INFORMATION
  Report Type: 
  Country: None (occurrence: None)
  Receive Date: 20041022
  Receipt Date: 20041013
  Transmission Date: 20050328
  Serious: Yes (Life-Threatening, Hospitalization)
  Sender: FDA-Public Use
  Company Number: US-MERCK-0410USA02123

PATIENT
  Age: 61 Year
  Sex: Female

DRUGS (10)
  1. VIOXX [Suspect]
     Indication: RHEUMATOID ARTHRITIS
     Route: 048
  2. METHOTREXATE [Concomitant]
     Route: 065
  3. ENBREL [Concomitant]
     Route: 065
  4. PREDNISONE [Concomitant]
     Route: 065
  5. NEURONTIN [Concomitant]
     Route: 065
  6. DIOVAN [Concomitant]
     Route: 065
  7. CALTRATE [Concomitant]
     Route: 065
  8. FORADIL [Concomitant]
     Route: 065
  9. ASPIRIN [Concomitant]
     Route: 065
  10. PAXIL [Concomitant]
     Route: 065

REACTIONS (6)
  - CARDIAC ARREST [None]
  - LEFT VENTRICULAR FAILURE [None]
  - PULMONARY OEDEMA [None]
  - RETINAL HAEMORRHAGE [None]
  - RETINAL VASCULITIS [None]
  - TACHYCARDIA [None]
